FAERS Safety Report 4738278-7 (Version None)
Quarter: 2005Q3

REPORT INFORMATION
  Report Type: 
  Country: None (occurrence: None)
  Receive Date: 20050803
  Receipt Date: 20050728
  Transmission Date: 20060218
  Serious: Yes (Disabling)
  Sender: FDA-Public Use
  Company Number: DEWYE863528JUL05

PATIENT
  Sex: Male

DRUGS (1)
  1. RAPAMUNE [Suspect]
     Indication: PROPHYLAXIS AGAINST TRANSPLANT REJECTION
     Dosage: 4 DAYS AFTER TRANSPLANATATION

REACTIONS (3)
  - HAEMOLYTIC URAEMIC SYNDROME [None]
  - SERUM SICKNESS [None]
  - TRANSPLANT REJECTION [None]
